FAERS Safety Report 5563173-3 (Version None)
Quarter: 2007Q4

REPORT INFORMATION
  Report Type: 
  Country: None (occurrence: None)
  Receive Date: 20071212
  Receipt Date: 20071212
  Transmission Date: 20080405
  Serious: Yes (Death, Life-Threatening, Hospitalization, Other)
  Sender: FDA-Public Use
  Company Number: None

PATIENT
  Sex: Male
  Weight: 74.8435 kg

DRUGS (8)
  1. PAXIL [Suspect]
     Indication: BEREAVEMENT REACTION
     Dosage: 10 MG  ONCE A DAY  PO
     Route: 048
     Dates: start: 20050901
  2. PAXIL [Suspect]
     Indication: DEATH OF RELATIVE
     Dosage: 10 MG  ONCE A DAY  PO
     Route: 048
     Dates: start: 20050901
  3. PAXIL [Suspect]
     Indication: BEREAVEMENT REACTION
     Dosage: 10 MG  ONCE A DAY  PO
     Route: 048
     Dates: start: 20051201
  4. PAXIL [Suspect]
     Indication: DEATH OF RELATIVE
     Dosage: 10 MG  ONCE A DAY  PO
     Route: 048
     Dates: start: 20051201
  5. PAXIL [Suspect]
     Indication: ANXIETY
     Dosage: 20 MG, 30 MG, 40 MG  ONCE A DAY  PO
     Route: 048
     Dates: start: 20060201, end: 20060701
  6. PAXIL [Suspect]
     Indication: HEADACHE
     Dosage: 20 MG, 30 MG, 40 MG  ONCE A DAY  PO
     Route: 048
     Dates: start: 20060201, end: 20060701
  7. PAXIL [Suspect]
     Indication: INSOMNIA
     Dosage: 20 MG, 30 MG, 40 MG  ONCE A DAY  PO
     Route: 048
     Dates: start: 20060201, end: 20060701
  8. PAXIL [Suspect]
     Indication: RESTLESSNESS
     Dosage: 20 MG, 30 MG, 40 MG  ONCE A DAY  PO
     Route: 048
     Dates: start: 20060201, end: 20060701

REACTIONS (20)
  - ABNORMAL DREAMS [None]
  - AKATHISIA [None]
  - ANXIETY [None]
  - BEREAVEMENT REACTION [None]
  - CHEST PAIN [None]
  - CHOKING [None]
  - COMPLETED SUICIDE [None]
  - CONDITION AGGRAVATED [None]
  - DEPRESSION [None]
  - DYSPNOEA [None]
  - GUN SHOT WOUND [None]
  - HEADACHE [None]
  - INSOMNIA [None]
  - LIBIDO DECREASED [None]
  - MUSCLE TWITCHING [None]
  - PANIC ATTACK [None]
  - RESTLESSNESS [None]
  - SELF-INJURIOUS IDEATION [None]
  - SUICIDAL IDEATION [None]
  - WITHDRAWAL SYNDROME [None]
